FAERS Safety Report 5288154-9 (Version None)
Quarter: 2007Q1

REPORT INFORMATION
  Report Type: 
  Country: None (occurrence: None)
  Receive Date: 20070329
  Receipt Date: 20070319
  Transmission Date: 20070707
  Serious: Yes (Hospitalization)
  Sender: FDA-Public Use
  Company Number: 2007-01282

PATIENT
  Age: 36 Year
  Sex: Male

DRUGS (2)
  1. DISULFIRAM [Suspect]
     Indication: ALCOHOLISM
     Dosage: 0.5 G, DAILY, ORAL
     Route: 048
  2. ALCOHOL (FROM FERMENTED VINEGAR) (ETHANOL) [Suspect]
     Dosage: ORAL
     Route: 048

REACTIONS (4)
  - ACUTE MYOCARDIAL INFARCTION [None]
  - ALCOHOL INTERACTION [None]
  - DRUG INTERACTION [None]
  - FOOD INTERACTION [None]
